FAERS Safety Report 13998738 (Version 3)
Quarter: 2018Q1

REPORT INFORMATION
  Report Type: Not Available
  Country: US (occurrence: US)
  Receive Date: 20170921
  Receipt Date: 20180106
  Transmission Date: 20180508
  Serious: No
  Sender: FDA-Public Use
  Company Number: US-NEUROCRINE BIOSCIENCES INC.-2017NBI00496

PATIENT
  Age: 49 Year
  Sex: Female

DRUGS (14)
  1. PRINIVIL [Concomitant]
     Active Substance: LISINOPRIL
  2. ZYPREXA [Concomitant]
     Active Substance: OLANZAPINE
     Dosage: AT BEDTIME
  3. INGREZZA [Suspect]
     Active Substance: VALBENAZINE
     Route: 048
     Dates: start: 20170815
  4. GABAPENTIN. [Concomitant]
     Active Substance: GABAPENTIN
  5. ATIVAN [Concomitant]
     Active Substance: LORAZEPAM
  6. CELECOXIB. [Concomitant]
     Active Substance: CELECOXIB
  7. INGREZZA [Suspect]
     Active Substance: VALBENAZINE
     Route: 048
     Dates: start: 20170707, end: 20170814
  8. ABILIFY [Concomitant]
     Active Substance: ARIPIPRAZOLE
  9. CYMBALTA [Concomitant]
     Active Substance: DULOXETINE HYDROCHLORIDE
  10. INDERAL [Concomitant]
     Active Substance: PROPRANOLOL HYDROCHLORIDE
  11. INGREZZA [Suspect]
     Active Substance: VALBENAZINE
     Indication: PRODUCT USED FOR UNKNOWN INDICATION
     Route: 048
     Dates: start: 20170630, end: 20170706
  12. OMEPRAZOLE. [Concomitant]
     Active Substance: OMEPRAZOLE
  13. GABAPENTIN. [Concomitant]
     Active Substance: GABAPENTIN
     Dosage: AT BEDTIME
  14. METHIMAZOLE. [Concomitant]
     Active Substance: METHIMAZOLE
     Dosage: HALF TABLET DAILY

REACTIONS (3)
  - Dyspnoea [Recovered/Resolved]
  - Heart rate irregular [Recovered/Resolved]
  - Weight increased [Recovered/Resolved]

NARRATIVE: CASE EVENT DATE: 2017
